FAERS Safety Report 9812541 (Version 1)
Quarter: 2014Q1

REPORT INFORMATION
  Report Type: Spontaneous
  Country: IT (occurrence: IT)
  Receive Date: 20140113
  Receipt Date: 20140113
  Transmission Date: 20141002
  Serious: Yes (Other)
  Sender: FDA-Public Use
  Company Number: IT-BRISTOL-MYERS SQUIBB COMPANY-19966639

PATIENT
  Age: 64 Year
  Sex: Female

DRUGS (1)
  1. TAXOL INJ [Suspect]
     Indication: BREAST CANCER
     Dosage: 1 DF= 70 MG
     Route: 040
     Dates: start: 20131223

REACTIONS (3)
  - Erythema [Recovered/Resolved]
  - Abdominal pain upper [Recovered/Resolved]
  - Dyspnoea [Recovered/Resolved]
